FAERS Safety Report 18773231 (Version 1)
Quarter: 2021Q1

REPORT INFORMATION
  Report Type: Spontaneous
  Country: US (occurrence: US)
  Receive Date: 20210122
  Receipt Date: 20210122
  Transmission Date: 20210419
  Serious: Yes (Life-Threatening, Disabling)
  Sender: FDA-Public Use
  Company Number: None

PATIENT
  Age: 62 Year
  Sex: Male
  Weight: 127.8 kg

DRUGS (1)
  1. TRULICITY [Suspect]
     Active Substance: DULAGLUTIDE
     Indication: GLYCOSYLATED HAEMOGLOBIN INCREASED
     Dosage: ?          QUANTITY:1 SINGLE DOSE PEN;OTHER FREQUENCY:1X/WEEK;?
     Route: 030
     Dates: start: 20200218

REACTIONS (2)
  - Carcinoid tumour of the gastrointestinal tract [None]
  - Pancreatitis acute [None]

NARRATIVE: CASE EVENT DATE: 20201101
